FAERS Safety Report 24439101 (Version 1)
Quarter: 2024Q4

REPORT INFORMATION
  Report Type: Spontaneous
  Country: CN (occurrence: CN)
  Receive Date: 20241015
  Receipt Date: 20241015
  Transmission Date: 20250115
  Serious: Yes (Hospitalization)
  Sender: STRIDES
  Company Number: CN-STRIDES ARCOLAB LIMITED-2024SP013138

PATIENT
  Age: 32 Year
  Sex: Male

DRUGS (4)
  1. IBUPROFEN [Suspect]
     Active Substance: IBUPROFEN
     Indication: Pyrexia
     Dosage: 0.3 GRAM, BID (SUSTAINED-RELEASE CAPSULES)
     Route: 048
  2. IBUPROFEN [Suspect]
     Active Substance: IBUPROFEN
     Dosage: 0.3 GRAM (SUSTAINED-RELEASE CAPSULES)
     Route: 048
  3. LEVOFLOXACIN HYDROCHLORIDE [Suspect]
     Active Substance: LEVOFLOXACIN HYDROCHLORIDE
     Indication: Pneumonia
     Dosage: 0.6 GRAM, OD
     Route: 042
  4. SODIUM CHLORIDE [Concomitant]
     Active Substance: SODIUM CHLORIDE
     Indication: Product used for unknown indication
     Dosage: 250 MILLILITER,
     Route: 042

REACTIONS (3)
  - Self-medication [Unknown]
  - Stevens-Johnson syndrome [Recovered/Resolved]
  - Therapy partial responder [Unknown]
